FAERS Safety Report 25162570 (Version 3)
Quarter: 2025Q3

REPORT INFORMATION
  Report Type: Spontaneous
  Country: AU (occurrence: AU)
  Receive Date: 20250404
  Receipt Date: 20250711
  Transmission Date: 20251021
  Serious: Yes (Other)
  Sender: Harrow Health
  Company Number: AU-HARROW-HAR-2025-AU-00057

PATIENT
  Sex: Male

DRUGS (3)
  1. FLAREX [Suspect]
     Active Substance: FLUOROMETHOLONE ACETATE
     Indication: Eye disorder
     Route: 065
  2. MAXIDEX [Suspect]
     Active Substance: DEXAMETHASONE
     Route: 065
  3. PREDNISOLONE [Suspect]
     Active Substance: PREDNISOLONE
     Route: 065

REACTIONS (9)
  - Uveitis [Unknown]
  - Eye inflammation [Unknown]
  - Eye disorder [Unknown]
  - Ocular hyperaemia [Unknown]
  - Product supply issue [Unknown]
  - Product delivery mechanism issue [Unknown]
  - Ocular discomfort [Unknown]
  - Photopsia [Unknown]
  - Therapeutic response decreased [Unknown]
